FAERS Safety Report 21054805 (Version 2)
Quarter: 2022Q3

REPORT INFORMATION
  Report Type: Spontaneous
  Country: IE (occurrence: IE)
  Receive Date: 20220707
  Receipt Date: 20220715
  Transmission Date: 20221027
  Serious: Yes (Death, Other)
  Sender: FDA-Public Use
  Company Number: IE-009507513-2207IRL001547

PATIENT
  Age: 74 Year
  Sex: Male

DRUGS (1)
  1. TEMODAL [Suspect]
     Active Substance: TEMOZOLOMIDE
     Indication: Pineal neoplasm
     Dosage: UNK
     Route: 048

REACTIONS (5)
  - Death [Fatal]
  - Cerebrospinal fluid retention [Unknown]
  - Malignant neoplasm progression [Unknown]
  - Ill-defined disorder [Unknown]
  - Product use in unapproved indication [Unknown]
